FAERS Safety Report 7233930 (Version 6)
Quarter: 2014Q2

REPORT INFORMATION
  Report Type: Spontaneous
  Country: US (occurrence: US)
  Receive Date: 20091230
  Receipt Date: 20140416
  Transmission Date: 20141212
  Serious: Yes (Hospitalization, Other)
  Sender: FDA-Public Use
  Company Number: US-ALEXION-A200901109

PATIENT
  Age: 49 Year
  Sex: Male

DRUGS (3)
  1. SOLIRIS 300MG [Suspect]
     Indication: PAROXYSMAL NOCTURNAL HAEMOGLOBINURIA
     Dosage: 600 MG, QW
     Route: 042
     Dates: start: 20071213, end: 20080102
  2. SOLIRIS 300MG [Suspect]
     Dosage: 900 MG, Q2W
     Route: 042
     Dates: start: 20080110
  3. SOLIRIS 300MG [Suspect]
     Dosage: 900 MG, Q12D
     Route: 042
     Dates: start: 20080401, end: 20081208

REACTIONS (7)
  - Transfusion [Unknown]
  - Renal failure [Recovered/Resolved]
  - Haemolysis [Recovered/Resolved]
  - Condition aggravated [Not Recovered/Not Resolved]
  - Chromaturia [Not Recovered/Not Resolved]
  - Dyspnoea [Unknown]
  - Motor dysfunction [Unknown]
